FAERS Safety Report 19804325 (Version 1)
Quarter: 2021Q3

REPORT INFORMATION
  Report Type: Spontaneous
  Country: US (occurrence: US)
  Receive Date: 20210908
  Receipt Date: 20210908
  Transmission Date: 20211014
  Serious: No
  Sender: FDA-Public Use
  Company Number: US-FARMAPROD-202105-0721

PATIENT
  Sex: Female

DRUGS (15)
  1. OXERVATE [Suspect]
     Active Substance: CENEGERMIN-BKBJ
     Indication: NEUROTROPHIC KERATOPATHY
     Route: 047
     Dates: start: 20210422
  2. CALCIUM/VITAMINE D3 [Concomitant]
     Dosage: 600?12.5 MG EXTENDED RELEASE TABLET
  3. LASIX [Concomitant]
     Active Substance: FUROSEMIDE
  4. CYCLOBENZAPRINE HYDROCHLORIDE. [Concomitant]
     Active Substance: CYCLOBENZAPRINE HYDROCHLORIDE
  5. METFORMIN [Concomitant]
     Active Substance: METFORMIN HYDROCHLORIDE
     Dosage: EXTENDED RELEASE GASTRIC
  6. REFRESH CELLUVISC [Concomitant]
     Active Substance: CARBOXYMETHYLCELLULOSE SODIUM
  7. LEXAPRO [Concomitant]
     Active Substance: ESCITALOPRAM OXALATE
  8. CELEBREX [Concomitant]
     Active Substance: CELECOXIB
  9. OMEGA?3/VITAMINE D3 [Concomitant]
     Dosage: 150?500 MG DELAYED RELEASE CAPSULE
  10. EYSUVIS [Concomitant]
     Active Substance: LOTEPREDNOL ETABONATE
  11. MACULAR HEALTH FORMULA [Concomitant]
  12. OMEPRAZOLE. [Concomitant]
     Active Substance: OMEPRAZOLE
     Dosage: DELAYED RELEASE CAPSULE
  13. LISINOPRIL. [Concomitant]
     Active Substance: LISINOPRIL
  14. KLOR?CON?EF [Concomitant]
  15. SINEMET [Concomitant]
     Active Substance: CARBIDOPA\LEVODOPA
     Dosage: 10?100 MG

REACTIONS (2)
  - Ocular discomfort [Unknown]
  - Eye pain [Unknown]
